FAERS Safety Report 6537396-0 (Version None)
Quarter: 2009Q4

REPORT INFORMATION
  Report Type: 
  Country: None (occurrence: None)
  Receive Date: 20091229
  Receipt Date: 20090923
  Transmission Date: 20100525
  Serious: No
  Sender: FDA-Public Use
  Company Number: 1000009053

PATIENT
  Age: 79 Year
  Sex: Female

DRUGS (6)
  1. BYSTOLIC [Suspect]
     Indication: FATIGUE
     Dosage: 5 MG (5 MG, 1 IN 1 D), ORAL
     Route: 048
     Dates: start: 20090127, end: 20090417
  2. BYSTOLIC [Suspect]
     Indication: HYPERTENSION
     Dosage: 5 MG (5 MG, 1 IN 1 D), ORAL
     Route: 048
     Dates: start: 20090127, end: 20090417
  3. CARDIZEM [Concomitant]
  4. DIGOXIN [Concomitant]
  5. SYNTHROID [Concomitant]
  6. METFORMIN HYDROCHLORIDE [Concomitant]

REACTIONS (1)
  - PALPITATIONS [None]
